FAERS Safety Report 22075354 (Version 1)
Quarter: 2023Q1

REPORT INFORMATION
  Report Type: Spontaneous
  Country: US (occurrence: US)
  Receive Date: 20230308
  Receipt Date: 20230308
  Transmission Date: 20230418
  Serious: Yes (Other)
  Sender: FDA-Public Use
  Company Number: US-TEVA-2023-US-2862154

PATIENT
  Age: 70 Year
  Sex: Female

DRUGS (1)
  1. CLONIDINE HYDROCHLORIDE [Suspect]
     Active Substance: CLONIDINE HYDROCHLORIDE
     Indication: Hypertension
     Dosage: FORM STRENGTH: 0.2 MG/24HR
     Route: 065
     Dates: start: 20230209

REACTIONS (6)
  - Gastric perforation [Unknown]
  - Rash pruritic [Not Recovered/Not Resolved]
  - Application site scar [Not Recovered/Not Resolved]
  - Application site rash [Recovering/Resolving]
  - Drug ineffective [Unknown]
  - Product administered at inappropriate site [Unknown]

NARRATIVE: CASE EVENT DATE: 20230201
